FAERS Safety Report 23629941 (Version 1)
Quarter: 2024Q1

REPORT INFORMATION
  Report Type: Spontaneous
  Country: US (occurrence: US)
  Receive Date: 20240314
  Receipt Date: 20240314
  Transmission Date: 20240410
  Serious: No
  Sender: FDA-Public Use
  Company Number: US-CIPLA LTD.-2023US02249

PATIENT

DRUGS (1)
  1. SERTRALINE [Suspect]
     Active Substance: SERTRALINE HYDROCHLORIDE
     Indication: Product used for unknown indication
     Dosage: 100 MILLIGRAM, QD (BEFORE BEDTIME)
     Route: 065

REACTIONS (10)
  - Nightmare [Unknown]
  - Depression [Unknown]
  - Loss of personal independence in daily activities [Unknown]
  - Disturbance in attention [Unknown]
  - Crying [Unknown]
  - Anxiety [Unknown]
  - Anger [Unknown]
  - Feeling abnormal [Unknown]
  - Off label use [Unknown]
  - Product substitution issue [Unknown]
